FAERS Safety Report 8232552 (Version 10)
Quarter: 2024Q2

REPORT INFORMATION
  Report Type: Report from Study
  Country: CA (occurrence: CA)
  Receive Date: 20111107
  Receipt Date: 20240625
  Transmission Date: 20240716
  Serious: Yes (Death, Life-Threatening, Hospitalization)
  Sender: FDA-Public Use
  Company Number: CA-JNJFOC-20111101416

PATIENT
  Age: 56 Year
  Sex: Male
  Weight: 89.438 kg

DRUGS (2)
  1. STELARA [Suspect]
     Active Substance: USTEKINUMAB
     Indication: Psoriasis
     Route: 058
     Dates: start: 20101021, end: 20110504
  2. STELARA [Suspect]
     Active Substance: USTEKINUMAB
     Route: 058
     Dates: start: 20110719

REACTIONS (4)
  - Oesophageal adenocarcinoma [Fatal]
  - Thrombotic stroke [Fatal]
  - Embolism venous [Fatal]
  - Barrett^s oesophagus [Unknown]

NARRATIVE: CASE EVENT DATE: 20111001
